FAERS Safety Report 8042486-X (Version None)
Quarter: 2012Q1

REPORT INFORMATION
  Report Type: 
  Country: None (occurrence: None)
  Receive Date: 20120112
  Receipt Date: 20120111
  Transmission Date: 20120608
  Serious: No
  Sender: FDA-Public Use
  Company Number: US-BAYER-2011-114876

PATIENT
  Age: 28 Year
  Sex: Female
  Weight: 64.263 kg

DRUGS (2)
  1. VITAMIN D [Concomitant]
     Dosage: UNK UNK, QOD
  2. BETASERON [Suspect]
     Indication: RELAPSING-REMITTING MULTIPLE SCLEROSIS
     Dosage: UNK, QOD
     Route: 058
     Dates: start: 20101101, end: 20111102

REACTIONS (1)
  - NO ADVERSE EVENT [None]
